FAERS Safety Report 14852026 (Version 1)
Quarter: 2018Q2

REPORT INFORMATION
  Report Type: Spontaneous
  Country: CH (occurrence: CH)
  Receive Date: 20180507
  Receipt Date: 20180507
  Transmission Date: 20180711
  Serious: Yes (Hospitalization)
  Sender: FDA-Public Use
  Company Number: CH-BAYER-2013-098174

PATIENT
  Age: 23 Year
  Sex: Female
  Weight: 54.88 kg

DRUGS (4)
  1. IRFEN [Suspect]
     Active Substance: IBUPROFEN
     Dosage: 400 MG, TID
     Route: 048
     Dates: start: 20130524, end: 20130529
  2. ASPIRIN 500 MG [Suspect]
     Active Substance: ASPIRIN
     Dosage: 500 MG, BID
     Route: 048
     Dates: start: 20130523, end: 20130527
  3. DAFALGAN [Suspect]
     Active Substance: ACETAMINOPHEN
     Dosage: 1 G, BID
     Route: 048
     Dates: start: 20130523
  4. OSPEN [Suspect]
     Active Substance: PENICILLIN V
     Dosage: 3 MIU, TID
     Route: 048
     Dates: start: 20130524, end: 20130527

REACTIONS (2)
  - Leukopenia [Recovered/Resolved]
  - Agranulocytosis [Recovered/Resolved]

NARRATIVE: CASE EVENT DATE: 20130527
